FAERS Safety Report 18143770 (Version 1)
Quarter: 2020Q3

REPORT INFORMATION
  Report Type: Spontaneous
  Country: KR (occurrence: KR)
  Receive Date: 20200812
  Receipt Date: 20200812
  Transmission Date: 20201103
  Serious: Yes (Other)
  Sender: FDA-Public Use
  Company Number: KR-SUN PHARMACEUTICAL INDUSTRIES LTD-2019R1-218546

PATIENT
  Age: 24 Year
  Sex: Female

DRUGS (1)
  1. NALTREXONE [Suspect]
     Active Substance: NALTREXONE
     Indication: SCHIZOPHRENIA
     Dosage: 50 MILLIGRAM, DAILY
     Route: 065

REACTIONS (1)
  - Hallucination, visual [Recovered/Resolved]
